FAERS Safety Report 8606556-7 (Version None)
Quarter: 2012Q3

REPORT INFORMATION
  Report Type: 
  Country: None (occurrence: None)
  Receive Date: 20120820
  Receipt Date: 20120808
  Transmission Date: 20120928
  Serious: Yes (Other)
  Sender: FDA-Public Use
  Company Number: JP-PFIZER INC-2012202069

PATIENT
  Age: 74 Year
  Sex: Female

DRUGS (3)
  1. CELEBREX [Suspect]
     Dosage: 200 MG, UNKNOWN/DAILY
     Route: 048
     Dates: start: 20120801
  2. RALOXIFENE HYDROCHLORIDE [Concomitant]
     Dosage: UNK
  3. CELEBREX [Suspect]
     Dosage: 200 MG, UNKNOWN/DAILY
     Route: 048
     Dates: end: 20120801

REACTIONS (2)
  - GLYCOSYLATED HAEMOGLOBIN INCREASED [None]
  - BLOOD GLUCOSE INCREASED [None]
